FAERS Safety Report 7730431-3 (Version None)
Quarter: 2011Q3

REPORT INFORMATION
  Report Type: 
  Country: None (occurrence: None)
  Receive Date: 20110906
  Receipt Date: 20110827
  Transmission Date: 20111222
  Serious: Yes (Other)
  Sender: FDA-Public Use
  Company Number: PHHY2010BR84807

PATIENT
  Sex: Female

DRUGS (3)
  1. BUDESONIDE [Concomitant]
  2. FORMOTEROL FUMARATE [Suspect]
     Dosage: 12/400 UG, UNK
  3. FORMOTEROL FUMARATE [Suspect]
     Dosage: 12/200 UG, UNK

REACTIONS (7)
  - NERVOUS SYSTEM DISORDER [None]
  - GASTRITIS [None]
  - FATIGUE [None]
  - DYSPNOEA [None]
  - LUNG DISORDER [None]
  - TREMOR [None]
  - HYPERTENSION [None]
